FAERS Safety Report 7256933-4 (Version None)
Quarter: 2011Q1

REPORT INFORMATION
  Report Type: 
  Country: None (occurrence: None)
  Receive Date: 20110129
  Receipt Date: 20100701
  Transmission Date: 20110831
  Serious: No
  Sender: FDA-Public Use
  Company Number: US-ABBOTT-10P-163-0655400-00

PATIENT
  Sex: Female
  Weight: 81.72 kg

DRUGS (15)
  1. HUMIRA [Suspect]
     Indication: RHEUMATOID ARTHRITIS
     Dates: start: 20100501, end: 20100601
  2. HUMIRA [Suspect]
     Dates: start: 20100601, end: 20100601
  3. FLEXERIL [Concomitant]
     Indication: MUSCLE SPASMS
  4. MORPHINE [Concomitant]
     Indication: PRODUCT USED FOR UNKNOWN INDICATION
  5. CYMBALTA [Concomitant]
     Indication: BIPOLAR DISORDER
  6. HUMIRA [Suspect]
     Dates: start: 20100601
  7. PREDNISONE [Concomitant]
     Indication: PRODUCT USED FOR UNKNOWN INDICATION
  8. METHOTREXATE [Concomitant]
     Indication: PRODUCT USED FOR UNKNOWN INDICATION
  9. MESTON [Concomitant]
     Indication: MYASTHENIA GRAVIS
  10. ABILIFY [Concomitant]
     Indication: BIPOLAR DISORDER
  11. XANAX [Concomitant]
     Indication: PRODUCT USED FOR UNKNOWN INDICATION
  12. PLAQUENIL [Concomitant]
     Indication: PRODUCT USED FOR UNKNOWN INDICATION
  13. NEURONTIN [Concomitant]
     Indication: PRODUCT USED FOR UNKNOWN INDICATION
  14. FLEXERIL [Concomitant]
     Indication: OSTEOARTHRITIS
  15. TOPAMAX [Concomitant]
     Indication: MIGRAINE

REACTIONS (1)
  - JOINT SWELLING [None]
